FAERS Safety Report 4717784-5 (Version None)
Quarter: 2005Q3

REPORT INFORMATION
  Report Type: 
  Country: None (occurrence: None)
  Receive Date: 20050718
  Receipt Date: 20050718
  Transmission Date: 20060218
  Serious: Yes (Death)
  Sender: FDA-Public Use
  Company Number: None

PATIENT
  Age: 41 Year
  Sex: Male
  Weight: 113.3993 kg

DRUGS (2)
  1. FENTANYL [Suspect]
  2. DIVALID [Suspect]

REACTIONS (4)
  - BRAIN DEATH [None]
  - HYPOVENTILATION [None]
  - MEDICATION ERROR [None]
  - MULTIPLE DRUG OVERDOSE [None]
